FAERS Safety Report 13964339 (Version 1)
Quarter: 2017Q3

REPORT INFORMATION
  Report Type: Spontaneous
  Country: US (occurrence: US)
  Receive Date: 20170913
  Receipt Date: 20170913
  Transmission Date: 20171128
  Serious: Yes (Hospitalization)
  Sender: FDA-Public Use
  Company Number: None

PATIENT
  Age: 30 Year
  Sex: Female
  Weight: 86 kg

DRUGS (1)
  1. OXYTOCIN IN LR [Suspect]
     Active Substance: OXYTOCIN
     Indication: NORMAL LABOUR
     Route: 041
     Dates: start: 20170719, end: 20170719

REACTIONS (1)
  - Postpartum haemorrhage [None]

NARRATIVE: CASE EVENT DATE: 20170719
